FAERS Safety Report 21434074 (Version 1)
Quarter: 2022Q4

REPORT INFORMATION
  Report Type: Spontaneous
  Country: BE (occurrence: BE)
  Receive Date: 20221010
  Receipt Date: 20221010
  Transmission Date: 20230113
  Serious: Yes (Hospitalization)
  Sender: FDA-Public Use
  Company Number: BE-MACLEODS PHARMACEUTICALS US LTD-MAC2022037661

PATIENT

DRUGS (3)
  1. METFORMIN [Suspect]
     Active Substance: METFORMIN HYDROCHLORIDE
     Indication: Type 2 diabetes mellitus
     Dosage: 500 MILLIGRAM, QD (IN 2 DIVIDED DOSES TO BE ADMINISTERED PO AFTER THE MORN-ING AND EVENING MEALS)
     Route: 048
  2. NATEGLINIDE [Concomitant]
     Active Substance: NATEGLINIDE
     Indication: Type 2 diabetes mellitus
     Dosage: 270  MILLIGRAM, QD (PO IN 3 DIVIDED DOSES, BEFORE MEALS)
     Route: 048
  3. PIOGLITAZONE [Concomitant]
     Active Substance: PIOGLITAZONE
     Indication: Type 2 diabetes mellitus
     Dosage: 15  MILLIGRAM, QD (PO QD, BEFORE BREAKFAST)
     Route: 048

REACTIONS (2)
  - Jaundice [Recovering/Resolving]
  - Mixed liver injury [Recovering/Resolving]
